FAERS Safety Report 5620659-0 (Version None)
Quarter: 2008Q1

REPORT INFORMATION
  Report Type: 
  Country: None (occurrence: None)
  Receive Date: 20080208
  Receipt Date: 20080130
  Transmission Date: 20080703
  Serious: Yes (Hospitalization)
  Sender: FDA-Public Use
  Company Number: NL-ABBOTT-08P-114-0436040-00

PATIENT
  Age: 41 Year
  Sex: Male

DRUGS (2)
  1. VALPROIC ACID [Suspect]
     Indication: EPILEPSY
     Route: 048
  2. VALPROIC ACID [Suspect]
     Route: 048

REACTIONS (11)
  - COMA [None]
  - CONVULSION [None]
  - HYPERAMMONAEMIA [None]
  - HYPOTENSION [None]
  - HYPOTHERMIA [None]
  - INTENTIONAL OVERDOSE [None]
  - LIPASE INCREASED [None]
  - METABOLIC ACIDOSIS [None]
  - RESPIRATORY DEPRESSION [None]
  - RHABDOMYOLYSIS [None]
  - SHOCK [None]
